FAERS Safety Report 17949496 (Version 1)
Quarter: 2020Q2

REPORT INFORMATION
  Report Type: Spontaneous
  Country: US (occurrence: US)
  Receive Date: 20200626
  Receipt Date: 20200626
  Transmission Date: 20200714
  Serious: Yes (Other)
  Sender: FDA-Public Use
  Company Number: US-JNJFOC-20200630704

PATIENT
  Sex: Female
  Weight: 63.5 kg

DRUGS (13)
  1. AMANTADINE. [Suspect]
     Active Substance: AMANTADINE HYDROCHLORIDE
     Indication: DYSKINESIA
     Dosage: 1X/DAY, AT BEDTIME
     Route: 048
     Dates: start: 20190706, end: 2020
  2. DONEPEZIL. [Concomitant]
     Active Substance: DONEPEZIL
  3. MYRBETRIQ [Concomitant]
     Active Substance: MIRABEGRON
  4. AMANTADINE. [Suspect]
     Active Substance: AMANTADINE HYDROCHLORIDE
     Dosage: 1X/DAY, AT BEDTIME
     Route: 048
     Dates: end: 2020
  5. TYLENOL [Concomitant]
     Active Substance: ACETAMINOPHEN
  6. GABAPENTIN. [Concomitant]
     Active Substance: GABAPENTIN
  7. GLIPIZIDE. [Concomitant]
     Active Substance: GLIPIZIDE
  8. MEMANTINE. [Concomitant]
     Active Substance: MEMANTINE
  9. TRAZODONE [Concomitant]
     Active Substance: TRAZODONE HYDROCHLORIDE
  10. DITROPAN XL [Suspect]
     Active Substance: OXYBUTYNIN CHLORIDE
     Indication: PRODUCT USED FOR UNKNOWN INDICATION
     Route: 065
     Dates: end: 202004
  11. LEVOTHYROXINE. [Concomitant]
     Active Substance: LEVOTHYROXINE
  12. SULFASALAZINE. [Concomitant]
     Active Substance: SULFASALAZINE
  13. CRANBERRY                          /01512301/ [Concomitant]
     Active Substance: CRANBERRY

REACTIONS (4)
  - Hallucinations, mixed [Unknown]
  - Amnesia [Unknown]
  - Confusional state [Unknown]
  - Disorientation [Unknown]
